FAERS Safety Report 22620494 (Version 1)
Quarter: 2023Q2

REPORT INFORMATION
  Report Type: Other
  Country: None (occurrence: IR)
  Receive Date: 20230620
  Receipt Date: 20230620
  Transmission Date: 20230721
  Serious: Yes (Hospitalization)
  Sender: FDA-Public Use
  Company Number: IR-B.Braun Medical Inc.-2142908

PATIENT
  Age: 36 Year
  Sex: Female

DRUGS (6)
  1. DEXTROSE [Suspect]
     Active Substance: DEXTROSE\DEXTROSE MONOHYDRATE
     Indication: Nutritional supplementation
  2. ONDANSETRON [Suspect]
     Active Substance: ONDANSETRON
  3. PANTOPRAZOLE [Suspect]
     Active Substance: PANTOPRAZOLE
  4. VITAMIN B6 [Suspect]
     Active Substance: PYRIDOXINE HYDROCHLORIDE
  5. ACTIVATED CHARCOAL [Suspect]
     Active Substance: ACTIVATED CHARCOAL
  6. SORBITOL [Suspect]
     Active Substance: SORBITOL

REACTIONS (1)
  - Drug ineffective [Unknown]
